FAERS Safety Report 19992595 (Version 1)
Quarter: 2021Q4

REPORT INFORMATION
  Report Type: Spontaneous
  Country: US (occurrence: US)
  Receive Date: 20211026
  Receipt Date: 20211026
  Transmission Date: 20220303
  Serious: Yes (Hospitalization, Other)
  Sender: FDA-Public Use
  Company Number: US-HETERO-HET2021US01984

PATIENT

DRUGS (3)
  1. METOPROLOL [Interacting]
     Active Substance: METOPROLOL
     Indication: Atrial fibrillation
     Dosage: 50 MG IN THE MORNING AND 25 MG AT BEDTIME
     Route: 048
  2. VERAPAMIL [Interacting]
     Active Substance: VERAPAMIL HYDROCHLORIDE
     Indication: Atrial fibrillation
     Dosage: 240 MG, BID
     Route: 048
  3. SPIRONOLACTONE [Concomitant]
     Active Substance: SPIRONOLACTONE
     Indication: Product used for unknown indication
     Dosage: 50 MG, QD
     Route: 048

REACTIONS (4)
  - Herbal interaction [Recovered/Resolved]
  - Bradycardia [Recovered/Resolved]
  - Presyncope [Recovered/Resolved]
  - Hypotension [Recovered/Resolved]
